FAERS Safety Report 7151188 (Version 2)
Quarter: 2014Q1

REPORT INFORMATION
  Report Type: Spontaneous
  Country: SE (occurrence: SE)
  Receive Date: 20091016
  Receipt Date: 20140319
  Transmission Date: 20141002
  Serious: Yes (Other)
  Sender: FDA-Public Use
  Company Number: SE-ALEXION-A200900747

PATIENT
  Sex: 0

DRUGS (7)
  1. SOLIRIS [Suspect]
     Indication: PAROXYSMAL NOCTURNAL HAEMOGLOBINURIA
     Dosage: 900 MG, Q2W
     Route: 042
     Dates: start: 2005
  2. CORTICOSTEROID NOS [Concomitant]
     Dosage: 10 MG, UNK
  3. CORTICOSTEROID NOS [Concomitant]
     Dosage: 5 MG, UNK
  4. KALCIPOS D [Concomitant]
     Indication: VITAMIN SUPPLEMENTATION
     Dosage: 1 UNK, UNK
     Route: 048
  5. WARFARIN [Concomitant]
     Indication: PROPHYLAXIS
     Dosage: UNK
     Route: 048
  6. FOLACIN                            /00024201/ [Concomitant]
     Indication: SUPPLEMENTATION THERAPY
     Dosage: UNK
     Route: 048
  7. ALVEDON [Concomitant]
     Indication: PAIN MANAGEMENT
     Dosage: 500 MG, PRN
     Route: 048

REACTIONS (12)
  - Haemolysis [Not Recovered/Not Resolved]
  - Red blood cell sedimentation rate increased [Not Recovered/Not Resolved]
  - Blood immunoglobulin M increased [Not Recovered/Not Resolved]
  - Feeling abnormal [Not Recovered/Not Resolved]
  - Haptoglobin decreased [Not Recovered/Not Resolved]
  - Local swelling [Not Recovered/Not Resolved]
  - Grip strength decreased [Not Recovered/Not Resolved]
  - White blood cell count decreased [Not Recovered/Not Resolved]
  - Abdominal pain [Not Recovered/Not Resolved]
  - Back pain [Not Recovered/Not Resolved]
  - Fatigue [Not Recovered/Not Resolved]
  - Headache [Not Recovered/Not Resolved]
